FAERS Safety Report 8823776 (Version 1)
Quarter: 2012Q4

REPORT INFORMATION
  Report Type: 
  Country: US (occurrence: US)
  Receive Date: 20121003
  Receipt Date: 20121003
  Transmission Date: 20130627
  Serious: No
  Sender: FDA-Public Use
  Company Number: US-ASTRAZENECA-2012SE73795

PATIENT
  Age: 55 Year
  Sex: Female

DRUGS (2)
  1. NEXIUM [Suspect]
     Route: 048
  2. SYMBICORT PMDI [Suspect]
     Dosage: Unknown dose and frequency
     Route: 055

REACTIONS (6)
  - Asthma [Unknown]
  - Multiple allergies [Unknown]
  - Irritable bowel syndrome [Unknown]
  - Anxiety [Unknown]
  - Thyroid disorder [Unknown]
  - Depression [Unknown]
